FAERS Safety Report 7183405-8 (Version None)
Quarter: 2010Q4

REPORT INFORMATION
  Report Type: 
  Country: None (occurrence: None)
  Receive Date: 20101220
  Receipt Date: 20101220
  Transmission Date: 20110411
  Serious: Yes (Hospitalization)
  Sender: FDA-Public Use
  Company Number: None

PATIENT
  Age: 63 Year
  Sex: Female
  Weight: 70.45 kg

DRUGS (7)
  1. LEVAQUIN [Suspect]
     Indication: PNEUMONIA
     Dosage: PO RECENT
     Route: 048
  2. METFORMIN [Concomitant]
  3. VERAPAMIL [Concomitant]
  4. FENOFIBRATE [Concomitant]
  5. CENTRUM SILVER [Concomitant]
  6. TRIAMTERENE AND HYDROCHLOROTHIAZIDE [Concomitant]
  7. DARVOCET [Concomitant]

REACTIONS (2)
  - CELLULITIS [None]
  - RASH PRURITIC [None]
